FAERS Safety Report 21767342 (Version 1)
Quarter: 2022Q4

REPORT INFORMATION
  Report Type: Spontaneous
  Country: US (occurrence: US)
  Receive Date: 20221222
  Receipt Date: 20221222
  Transmission Date: 20230113
  Serious: No
  Sender: FDA-Public Use
  Company Number: US-SA-SAC20221220000682

PATIENT
  Sex: Male

DRUGS (2)
  1. DUPIXENT [Suspect]
     Active Substance: DUPILUMAB
     Dosage: 300 MG
     Route: 058
  2. ROFLUMILAST [Suspect]
     Active Substance: ROFLUMILAST
     Dosage: UNK

REACTIONS (3)
  - Pain [Unknown]
  - Nausea [Unknown]
  - Decreased appetite [Unknown]
